FAERS Safety Report 20575736 (Version 1)
Quarter: 2022Q1

REPORT INFORMATION
  Report Type: Spontaneous
  Country: US (occurrence: US)
  Receive Date: 20220310
  Receipt Date: 20220310
  Transmission Date: 20220424
  Serious: No
  Sender: FDA-Public Use
  Company Number: US-SANOFI-01002400

PATIENT
  Sex: Female

DRUGS (3)
  1. LANTUS SOLOSTAR [Suspect]
     Active Substance: INSULIN GLARGINE
     Indication: Type 2 diabetes mellitus
     Dosage: 11 IU, QD
  2. NOVOLOG [Concomitant]
     Active Substance: INSULIN ASPART
     Dosage: UNK UNK, TID
  3. NOVOLOG [Concomitant]
     Active Substance: INSULIN ASPART
     Dosage: UNK UNK, TID

REACTIONS (1)
  - Visual impairment [Unknown]
